FAERS Safety Report 6315591-3 (Version None)
Quarter: 2009Q3

REPORT INFORMATION
  Report Type: 
  Country: None (occurrence: None)
  Receive Date: 20090818
  Receipt Date: 20090804
  Transmission Date: 20100115
  Serious: Yes (Life-Threatening, Hospitalization)
  Sender: FDA-Public Use
  Company Number: 8049087

PATIENT
  Age: 52 Year
  Sex: Female
  Weight: 54 kg

DRUGS (10)
  1. CERTOLIZUMAB PEGOL [Suspect]
     Indication: RHEUMATOID ARTHRITIS
     Dosage: 200 MG 1/2W SC
     Route: 058
     Dates: start: 20060118, end: 20060706
  2. CERTOLIZUMAB PEGOL [Suspect]
     Indication: RHEUMATOID ARTHRITIS
     Dosage: 200 MG 1/2W SC
     Route: 058
     Dates: start: 20060706, end: 20090616
  3. METHOTREXATE [Concomitant]
  4. ENCORTON [Concomitant]
  5. .. [Concomitant]
  6. ATENOLOL [Concomitant]
  7. AMLOZEK /00972401/ [Concomitant]
  8. TERTENSIF [Concomitant]
  9. FOLIC ACID [Concomitant]
  10. POLPRAZOL [Concomitant]

REACTIONS (18)
  - ADHESION [None]
  - ANAEMIA [None]
  - BLOOD ALBUMIN DECREASED [None]
  - BLOOD CREATINE PHOSPHOKINASE MB INCREASED [None]
  - BLOOD FIBRINOGEN INCREASED [None]
  - BLOOD GLUCOSE INCREASED [None]
  - BLOOD SODIUM DECREASED [None]
  - DEHYDRATION [None]
  - FIBRIN D DIMER INCREASED [None]
  - GASTROENTERITIS [None]
  - NEISSERIA INFECTION [None]
  - OEDEMA PERIPHERAL [None]
  - OROPHARYNGEAL CANDIDIASIS [None]
  - PLEURAL RUB [None]
  - PNEUMOCOCCAL SEPSIS [None]
  - PNEUMONIA STREPTOCOCCAL [None]
  - PROTHROMBIN TIME PROLONGED [None]
  - QRS AXIS ABNORMAL [None]
